FAERS Safety Report 25803570 (Version 1)
Quarter: 2025Q3

REPORT INFORMATION
  Report Type: Report from Study
  Country: PK (occurrence: PK)
  Receive Date: 20250915
  Receipt Date: 20250915
  Transmission Date: 20251020
  Serious: Yes (Other)
  Sender: ROCHE
  Company Number: PK-ROCHE-10000380546

PATIENT
  Age: 37 Year
  Sex: Female

DRUGS (1)
  1. HERCEPTIN [Suspect]
     Active Substance: TRASTUZUMAB
     Indication: Breast cancer
     Route: 058
     Dates: start: 20241129

REACTIONS (3)
  - Disease progression [Unknown]
  - Impaired healing [Unknown]
  - Asthenia [Unknown]

NARRATIVE: CASE EVENT DATE: 20250601
